FAERS Safety Report 15315428 (Version 2)
Quarter: 2018Q4

REPORT INFORMATION
  Report Type: Report from Study
  Country: US (occurrence: US)
  Receive Date: 20180824
  Receipt Date: 20181016
  Transmission Date: 20190204
  Serious: No
  Sender: FDA-Public Use
  Company Number: US-AMGEN INC.-USASL2018107088

PATIENT
  Age: 74 Year
  Sex: Female

DRUGS (1)
  1. AIMOVIG [Suspect]
     Active Substance: ERENUMAB-AOOE
     Indication: MIGRAINE PROPHYLAXIS
     Dosage: 140 MG, QMO
     Route: 065
     Dates: start: 20180717

REACTIONS (8)
  - Hyperhidrosis [Recovered/Resolved]
  - Feeling jittery [Recovered/Resolved]
  - Tinnitus [Not Recovered/Not Resolved]
  - Constipation [Unknown]
  - Insomnia [Unknown]
  - Palpitations [Unknown]
  - Abdominal pain upper [Unknown]
  - Blood pressure increased [Unknown]

NARRATIVE: CASE EVENT DATE: 201807
